FAERS Safety Report 18772139 (Version 1)
Quarter: 2021Q1

REPORT INFORMATION
  Report Type: Spontaneous
  Country: US (occurrence: US)
  Receive Date: 20210121
  Receipt Date: 20210121
  Transmission Date: 20210419
  Serious: Yes (Other)
  Sender: FDA-Public Use
  Company Number: US-J.R. WATKINS, LLC-2021JRW00002

PATIENT
  Sex: Male

DRUGS (1)
  1. PAIN RELIEVING LINIMENT [Suspect]
     Active Substance: CAMPHOR (NATURAL)\MENTHOL

REACTIONS (2)
  - Lower respiratory tract congestion [Recovered/Resolved]
  - Dyspnoea [Recovered/Resolved]
